FAERS Safety Report 12111515 (Version 1)
Quarter: 2016Q1

REPORT INFORMATION
  Report Type: Spontaneous
  Country: US (occurrence: US)
  Receive Date: 20160224
  Receipt Date: 20160224
  Transmission Date: 20160526
  Serious: Yes (Hospitalization)
  Sender: FDA-Public Use
  Company Number: US-JAZZ-2015-US-015720

PATIENT
  Age: 77 Year
  Sex: Female

DRUGS (6)
  1. PRIALT [Suspect]
     Active Substance: ZICONOTIDE ACETATE
     Indication: BACK PAIN
     Dosage: 0.004 ?G, QH
     Route: 037
  2. DILAUDID [Suspect]
     Active Substance: HYDROMORPHONE HYDROCHLORIDE
     Indication: PAIN
  3. FENTANYL. [Suspect]
     Active Substance: FENTANYL
     Indication: BACK PAIN
     Dosage: 83.333 ?G, QH
     Route: 037
  4. PRIALT [Suspect]
     Active Substance: ZICONOTIDE ACETATE
     Indication: PAIN
  5. DILAUDID [Suspect]
     Active Substance: HYDROMORPHONE HYDROCHLORIDE
     Indication: BACK PAIN
     Dosage: 0.125 ?G, QH
     Route: 037
  6. FENTANYL. [Suspect]
     Active Substance: FENTANYL
     Indication: PAIN

REACTIONS (1)
  - Unresponsive to stimuli [Unknown]

NARRATIVE: CASE EVENT DATE: 20151001
